FAERS Safety Report 4851543-8 (Version None)
Quarter: 2005Q4

REPORT INFORMATION
  Report Type: 
  Country: None (occurrence: None)
  Receive Date: 20051212
  Receipt Date: 20051130
  Transmission Date: 20060501
  Serious: Yes (Other)
  Sender: FDA-Public Use
  Company Number: BE-ROCHE-427109

PATIENT
  Age: 26 Year
  Sex: Female
  Weight: 60 kg

DRUGS (2)
  1. ROACCUTANE [Suspect]
     Indication: ACNE
     Route: 048
     Dates: start: 20050915, end: 20051015
  2. ROACCUTANE [Suspect]
     Route: 048
     Dates: start: 20051015

REACTIONS (1)
  - WHITE BLOOD CELL COUNT INCREASED [None]
